FAERS Safety Report 18023937 (Version 3)
Quarter: 2020Q4

REPORT INFORMATION
  Report Type: Spontaneous
  Country: US (occurrence: US)
  Receive Date: 20200715
  Receipt Date: 20201201
  Transmission Date: 20210113
  Serious: Yes (Hospitalization, Other)
  Sender: FDA-Public Use
  Company Number: US-TEVA-2020-US-1800302

PATIENT
  Age: 57 Year
  Sex: Male

DRUGS (13)
  1. ALLEGRA [Concomitant]
     Active Substance: FEXOFENADINE HYDROCHLORIDE
     Dosage: 180 MILLIGRAM DAILY;
     Route: 048
  2. AMLODIPINE W/VALSARTAN TEVA [Suspect]
     Active Substance: AMLODIPINE\VALSARTAN
     Dosage: 1 DOSAGE FORMS DAILY; AMLODIPINE 10 MG/VALSARTAN 320 MG
     Route: 048
  3. DIOVAN [Suspect]
     Active Substance: VALSARTAN
     Indication: HYPERTENSION
     Dosage: 160 MG
  4. ALPRAZOLAM. [Concomitant]
     Active Substance: ALPRAZOLAM
     Dosage: 0.5 TO 1 TAB AS NEEDED
     Route: 048
  5. ROSUVASTATIN. [Concomitant]
     Active Substance: ROSUVASTATIN
     Dosage: 10 MILLIGRAM DAILY; AT BEDTIME
     Route: 048
  6. AMLODIPINE W/VALSARTAN PAR [Suspect]
     Active Substance: AMLODIPINE\VALSARTAN
     Indication: HYPERTENSION
     Dosage: AMLODIPINE 5MG/VALSARTAN 160 MG
     Route: 065
  7. AMLODIPINE/VALSARTAN AUROBINDO [Suspect]
     Active Substance: AMLODIPINE\VALSARTAN
     Indication: HYPERTENSION
     Dosage: 1 DOSAGE FORMS DAILY; AMLODIPINE 10MG/VALSARTAN 320 MG
     Route: 048
  8. VALSARTAN SOLCO [Suspect]
     Active Substance: VALSARTAN
     Indication: HYPERTENSION
     Dosage: 320 MILLIGRAM DAILY; 160 MG
     Route: 048
  9. VALSARTAN RANBAXY [Suspect]
     Active Substance: VALSARTAN
     Indication: HYPERTENSION
     Dosage: 160 MG
     Route: 065
  10. AMLODIPINE W/VALSARTAN TEVA [Suspect]
     Active Substance: AMLODIPINE\VALSARTAN
     Indication: HYPERTENSION
     Dosage: 1 DOSAGE FORMS DAILY; AMLODIPINE 10 MG/VALSARTAN 160 MG
     Route: 048
  11. AMLODIPINE W/VALSARTAN LUPIN [Suspect]
     Active Substance: AMLODIPINE\VALSARTAN
     Indication: HYPERTENSION
     Dosage: 1 DOSAGE FORMS DAILY; AMLODIPINE 10 MG/VALSARTAN 320 MG
     Route: 048
  12. NEXIUM [Concomitant]
     Active Substance: ESOMEPRAZOLE MAGNESIUM
     Indication: GASTROOESOPHAGEAL REFLUX DISEASE
     Dosage: 1 DOSAGE FORMS DAILY;
     Route: 048
  13. ARMOUR THYROID [Concomitant]
     Active Substance: THYROID, PORCINE
     Dosage: 180 MILLIGRAM DAILY;
     Route: 048

REACTIONS (2)
  - Hepatic cancer [Recovered/Resolved]
  - Small intestine carcinoma [Recovered/Resolved]
